FAERS Safety Report 10559587 (Version 2)
Quarter: 2015Q1

REPORT INFORMATION
  Report Type: Spontaneous
  Country: US (occurrence: US)
  Receive Date: 20141103
  Receipt Date: 20150129
  Transmission Date: 20150720
  Serious: No
  Sender: FDA-Public Use
  Company Number: US-PFIZER INC-2014297565

PATIENT
  Age: 66 Year
  Sex: Male
  Weight: 73.5 kg

DRUGS (2)
  1. ATENOLOL. [Concomitant]
     Active Substance: ATENOLOL
     Dosage: UNK
  2. XALKORI [Suspect]
     Active Substance: CRIZOTINIB
     Indication: NEOPLASM MALIGNANT
     Dosage: 250 MG,  2X/DAY

REACTIONS (4)
  - Asthenia [Unknown]
  - Liver disorder [Unknown]
  - Dyspepsia [Unknown]
  - Renal disorder [Unknown]
